FAERS Safety Report 6091660-0 (Version None)
Quarter: 2009Q1

REPORT INFORMATION
  Report Type: 
  Country: None (occurrence: None)
  Receive Date: 20090225
  Receipt Date: 20080416
  Transmission Date: 20090719
  Serious: No
  Sender: FDA-Public Use
  Company Number: A0717602A

PATIENT
  Age: 59 Year
  Sex: Male

DRUGS (6)
  1. VALTREX [Suspect]
     Dosage: 1G THREE TIMES PER DAY
     Route: 048
     Dates: start: 20080129
  2. PREDNISONE [Concomitant]
  3. HYDROCODONE [Concomitant]
  4. GLEEVEC [Concomitant]
  5. ALEVE [Concomitant]
  6. UNKNOWN [Concomitant]

REACTIONS (13)
  - ABDOMINAL PAIN UPPER [None]
  - ANOREXIA [None]
  - DEPRESSION [None]
  - DIZZINESS [None]
  - DRUG INEFFECTIVE [None]
  - DYSPHAGIA [None]
  - HYPERSOMNIA [None]
  - INSOMNIA [None]
  - NAUSEA [None]
  - PAIN [None]
  - RASH [None]
  - SKIN TIGHTNESS [None]
  - WEIGHT DECREASED [None]
